FAERS Safety Report 21180058 (Version 1)
Quarter: 2022Q3

REPORT INFORMATION
  Report Type: Spontaneous
  Country: US (occurrence: None)
  Receive Date: 20220805
  Receipt Date: 20220805
  Transmission Date: 20221026
  Serious: Yes (Hospitalization)
  Sender: FDA-Public Use
  Company Number: None

PATIENT
  Age: 52 Year
  Sex: Male
  Weight: 131.09 kg

DRUGS (2)
  1. CHLORTHALIDONE [Suspect]
     Active Substance: CHLORTHALIDONE
     Indication: Hypertension
     Dosage: FREQUENCY : DAILY;?
     Route: 048
     Dates: start: 20190912, end: 20220331
  2. SEMAGLUTIDE [Suspect]
     Active Substance: SEMAGLUTIDE
     Indication: Diabetes mellitus
     Dosage: FREQUENCY : 4 TIMES A DAY;?
     Route: 058
     Dates: start: 20210226, end: 20220331

REACTIONS (6)
  - Pancreatitis [None]
  - Myalgia [None]
  - Pain in extremity [None]
  - Pain in extremity [None]
  - Headache [None]
  - Blood pressure abnormal [None]

NARRATIVE: CASE EVENT DATE: 20220331
